FAERS Safety Report 4577923-6 (Version None)
Quarter: 2005Q1

REPORT INFORMATION
  Report Type: 
  Country: None (occurrence: None)
  Receive Date: 20050209
  Receipt Date: 20041119
  Transmission Date: 20050727
  Serious: Yes (Other)
  Sender: FDA-Public Use
  Company Number: 2004097804

PATIENT
  Age: 50 Year
  Sex: Female

DRUGS (3)
  1. CELEBREX [Suspect]
     Indication: ILL-DEFINED DISORDER
     Dosage: 800 MG (400 MG, 2 IN 1 D), ORAL
     Route: 048
  2. VENLAFAXINE HCL [Suspect]
     Indication: ILL-DEFINED DISORDER
     Dosage: 75 MG (75 MG, 1 IN 1 D), ORAL
     Route: 048
  3. EPOETIN ALFA (EPOETIN ALFA) [Suspect]
     Indication: ILL-DEFINED DISORDER
     Dosage: 40000 I.U., SUBCUTANEOUS
     Route: 058

REACTIONS (1)
  - HYPERTENSION [None]
